FAERS Safety Report 8359310-8 (Version None)
Quarter: 2012Q2

REPORT INFORMATION
  Report Type: 
  Country: None (occurrence: None)
  Receive Date: 20120515
  Receipt Date: 20120514
  Transmission Date: 20120825
  Serious: No
  Sender: FDA-Public Use
  Company Number: US-PFIZER INC-2012116931

PATIENT
  Sex: Female
  Weight: 73 kg

DRUGS (4)
  1. MELOXICAM [Suspect]
     Indication: ARTHRITIS
     Dosage: 50 MG, DAILY
  2. ATENOLOL [Concomitant]
     Indication: HYPERTENSION
     Dosage: 50 MG,  DAILY
  3. CELEBREX [Suspect]
     Indication: ARTHRITIS
     Dosage: UNK, DAILY
     Dates: end: 20120501
  4. CLONIDINE [Concomitant]
     Indication: HYPERTENSION
     Dosage: 0.2 MG, 2X/DAY

REACTIONS (6)
  - URETHRAL PROLAPSE [None]
  - PAIN [None]
  - ARTHROPATHY [None]
  - DRUG INEFFECTIVE [None]
  - BLADDER PROLAPSE [None]
  - SCIATICA [None]
